FAERS Safety Report 18745827 (Version 5)
Quarter: 2021Q2

REPORT INFORMATION
  Report Type: Report from Study
  Country: US (occurrence: US)
  Receive Date: 20210115
  Receipt Date: 20210512
  Transmission Date: 20210717
  Serious: Yes (Hospitalization, Other)
  Sender: FDA-Public Use
  Company Number: US-GLAXOSMITHKLINE-US2020AMR245379

PATIENT
  Sex: Female

DRUGS (4)
  1. NIRAPARIB [Suspect]
     Active Substance: NIRAPARIB
     Dosage: 300 MG, QD
     Route: 048
     Dates: start: 20201211
  2. NIRAPARIB [Suspect]
     Active Substance: NIRAPARIB
     Dosage: 300 MG, QD
     Route: 048
  3. NIRAPARIB [Suspect]
     Active Substance: NIRAPARIB
     Dosage: 300 MG, QD
     Route: 048
  4. NIRAPARIB [Suspect]
     Active Substance: NIRAPARIB
     Indication: OVARIAN CANCER
     Dosage: 300 MG, QD
     Route: 048
     Dates: start: 2019

REACTIONS (11)
  - Fatigue [Unknown]
  - Biopsy [Unknown]
  - Constipation [Unknown]
  - Hospitalisation [Unknown]
  - Tooth disorder [Unknown]
  - Nasal neoplasm [Unknown]
  - Lymphadenopathy [Unknown]
  - Pneumonia [Not Recovered/Not Resolved]
  - Tooth extraction [Unknown]
  - Pulmonary mass [Not Recovered/Not Resolved]
  - Eye laser surgery [Unknown]
